FAERS Safety Report 9088112 (Version 2)
Quarter: 2013Q2

REPORT INFORMATION
  Report Type: Spontaneous
  Country: US (occurrence: US)
  Receive Date: 20130201
  Receipt Date: 20130401
  Transmission Date: 20140414
  Serious: No
  Sender: FDA-Public Use
  Company Number: US-009507513-1301USA014025

PATIENT
  Sex: Female
  Weight: 39.46 kg

DRUGS (1)
  1. MIRALAX [Suspect]
     Indication: CONSTIPATION
     Dosage: 8.5 G, UNKNOWN
     Route: 048

REACTIONS (3)
  - Drug ineffective [Unknown]
  - Expired drug administered [Unknown]
  - Underdose [Unknown]
